FAERS Safety Report 9448402 (Version 1)
Quarter: 2013Q3

REPORT INFORMATION
  Report Type: Spontaneous
  Country: IT (occurrence: IT)
  Receive Date: 20130808
  Receipt Date: 20130808
  Transmission Date: 20140515
  Serious: Yes (Hospitalization)
  Sender: FDA-Public Use
  Company Number: IT-PFIZER INC-2013231009

PATIENT
  Age: 78 Year
  Sex: Female

DRUGS (7)
  1. MEDROL [Suspect]
     Indication: ARTHRALGIA
     Dosage: 16 MG, 1X/DAY
     Route: 048
     Dates: start: 20130510, end: 20130516
  2. CARDIRENE [Suspect]
     Indication: THROMBOSIS PROPHYLAXIS
     Dosage: 1 DF, 1X/DAY
     Route: 048
     Dates: start: 20130101, end: 20130516
  3. RAMIPRIL/HYDROCHLOROTHIAZIDE [Concomitant]
     Route: 048
  4. RABEPRAZOLE SODIUM [Concomitant]
  5. ALLOPURINOL [Concomitant]
     Route: 048
  6. AMARYL [Concomitant]
     Route: 048
  7. SIVASTIN [Concomitant]
     Route: 048

REACTIONS (3)
  - Haematemesis [Unknown]
  - Melaena [Unknown]
  - Pallor [Unknown]
